FAERS Safety Report 16809523 (Version 1)
Quarter: 2019Q3

REPORT INFORMATION
  Report Type: Spontaneous
  Country: US (occurrence: US)
  Receive Date: 20190916
  Receipt Date: 20190916
  Transmission Date: 20191005
  Serious: No
  Sender: FDA-Public Use
  Company Number: US-ASTRAZENECA-2019SF25375

PATIENT
  Sex: Female

DRUGS (1)
  1. PULMICORT FLEXHALER [Suspect]
     Active Substance: BUDESONIDE
     Indication: ASTHMA
     Dosage: 1 PUFF
     Route: 055

REACTIONS (11)
  - Drug ineffective [Not Recovered/Not Resolved]
  - Influenza [Not Recovered/Not Resolved]
  - Dyspnoea [Not Recovered/Not Resolved]
  - Throat irritation [Not Recovered/Not Resolved]
  - Aphonia [Recovering/Resolving]
  - Dysphonia [Not Recovered/Not Resolved]
  - Productive cough [Not Recovered/Not Resolved]
  - Hypersensitivity [Not Recovered/Not Resolved]
  - Palpitations [Not Recovered/Not Resolved]
  - Pruritus generalised [Not Recovered/Not Resolved]
  - Cough [Not Recovered/Not Resolved]
